FAERS Safety Report 12332210 (Version 1)
Quarter: 2016Q2

REPORT INFORMATION
  Report Type: Spontaneous
  Country: US (occurrence: US)
  Receive Date: 20160504
  Receipt Date: 20160504
  Transmission Date: 20160815
  Serious: No
  Sender: FDA-Public Use
  Company Number: US-ROCHE-1646920

PATIENT
  Age: 79 Year
  Sex: Male
  Weight: 71.73 kg

DRUGS (6)
  1. ESBRIET [Suspect]
     Active Substance: PIRFENIDONE
     Indication: IDIOPATHIC PULMONARY FIBROSIS
     Dosage: THREE CAPSULES BY MOUTH THREE TIMES A DAY WITH FOOD,
     Route: 048
     Dates: start: 20150313
  2. AMLODIPINE [Concomitant]
     Active Substance: AMLODIPINE BESYLATE
     Route: 048
  3. PROAIR HFA [Concomitant]
     Active Substance: ALBUTEROL SULFATE
     Indication: COUGH
     Route: 065
  4. ASPIRIN. [Concomitant]
     Active Substance: ASPIRIN
     Route: 048
  5. ESBRIET [Suspect]
     Active Substance: PIRFENIDONE
     Indication: INTERSTITIAL LUNG DISEASE
     Dosage: 3 CAPSULES, 3 TIMES A DAY
     Route: 048
     Dates: start: 201502, end: 201510
  6. PREDNISONE. [Concomitant]
     Active Substance: PREDNISONE
     Indication: INTERSTITIAL LUNG DISEASE
     Route: 048
     Dates: start: 201510, end: 201511

REACTIONS (3)
  - Abdominal discomfort [Unknown]
  - Gastric disorder [Unknown]
  - Nausea [Recovered/Resolved]

NARRATIVE: CASE EVENT DATE: 201503
